FAERS Safety Report 15777109 (Version 1)
Quarter: 2018Q4

REPORT INFORMATION
  Report Type: Spontaneous
  Country: US (occurrence: US)
  Receive Date: 20181212
  Receipt Date: 20181212
  Transmission Date: 20190205
  Serious: No
  Sender: FDA-Public Use
  Company Number: None

PATIENT
  Age: 52 Year
  Sex: Female
  Weight: 67.13 kg

DRUGS (1)
  1. BENLYSTA [Suspect]
     Active Substance: BELIMUMAB
     Indication: SYSTEMIC LUPUS ERYTHEMATOSUS
     Dosage: ?          OTHER FREQUENCY:OVER 1 HR DAY 1;?
     Route: 042
     Dates: start: 201803

REACTIONS (5)
  - Impaired driving ability [None]
  - Dry eye [None]
  - Pain in extremity [None]
  - Gait disturbance [None]
  - Musculoskeletal stiffness [None]
